FAERS Safety Report 5492116-6 (Version None)
Quarter: 2007Q4

REPORT INFORMATION
  Report Type: 
  Country: None (occurrence: None)
  Receive Date: 20071022
  Receipt Date: 20071019
  Transmission Date: 20080405
  Serious: Yes (Life-Threatening)
  Sender: FDA-Public Use
  Company Number: PHBS2007CH17451

PATIENT
  Sex: Female

DRUGS (1)
  1. SYNTOCINON [Suspect]
     Indication: LABOUR INDUCTION
     Dosage: 12 TO 13 DF OF 5 IU EACH IN INTERVALS OF 1 H
     Route: 042

REACTIONS (3)
  - OVERDOSE [None]
  - UTERINE ATONY [None]
  - UTERINE HAEMORRHAGE [None]
